FAERS Safety Report 23309237 (Version 3)
Quarter: 2025Q1

REPORT INFORMATION
  Report Type: Spontaneous
  Country: IT (occurrence: IT)
  Receive Date: 20231218
  Receipt Date: 20250114
  Transmission Date: 20250408
  Serious: Yes (Life-Threatening, Other)
  Sender: SAMSUNG BIOEPIS
  Company Number: IT-SAMSUNG BIOEPIS-SB-2023-33472

PATIENT
  Age: 20 Year
  Sex: Male

DRUGS (35)
  1. ETANERCEPT [Suspect]
     Active Substance: ETANERCEPT
     Indication: Still^s disease
     Dosage: 25 TO 50 MG/KG/WEEK (0.8 MG/KG/WEEK);
     Route: 058
     Dates: start: 200507, end: 200512
  2. ETANERCEPT [Suspect]
     Active Substance: ETANERCEPT
     Indication: Haemophagocytic lymphohistiocytosis
     Dosage: 25 TO 50 MG/KG/WEEK (0.8 MG/KG/WEEK);
     Route: 058
     Dates: start: 200901, end: 201308
  3. ETANERCEPT [Suspect]
     Active Substance: ETANERCEPT
     Dosage: 25 TO 50 MG/KG/WEEK (0.8 MG/KG/WEEK);
     Route: 058
     Dates: start: 201310, end: 201803
  4. ETANERCEPT [Suspect]
     Active Substance: ETANERCEPT
     Dosage: 25 TO 50 MG/KG/WEEK (0.8 MG/KG/WEEK);
     Route: 065
     Dates: start: 200507, end: 200512
  5. ADALIMUMAB [Suspect]
     Active Substance: ADALIMUMAB
     Indication: Still^s disease
     Dosage: 40 MG/2 WEEKS;
     Route: 058
     Dates: start: 201308, end: 201310
  6. ADALIMUMAB [Suspect]
     Active Substance: ADALIMUMAB
     Indication: Haemophagocytic lymphohistiocytosis
     Dosage: 20 MG/2 WEEKS;
     Route: 058
     Dates: start: 200608
  7. ADALIMUMAB [Suspect]
     Active Substance: ADALIMUMAB
     Route: 065
  8. BARICITINIB [Suspect]
     Active Substance: BARICITINIB
     Indication: Still^s disease
     Dosage: 4 MG, DAILY;
     Route: 048
     Dates: start: 202007, end: 202205
  9. BARICITINIB [Suspect]
     Active Substance: BARICITINIB
     Indication: Haemophagocytic lymphohistiocytosis
  10. METHOTREXATE SODIUM [Suspect]
     Active Substance: METHOTREXATE SODIUM
     Indication: Still^s disease
     Route: 058
  11. METHOTREXATE SODIUM [Suspect]
     Active Substance: METHOTREXATE SODIUM
     Indication: Haemophagocytic lymphohistiocytosis
  12. TOCILIZUMAB [Suspect]
     Active Substance: TOCILIZUMAB
     Indication: Still^s disease
     Dosage: 12 MG/KG/2 WEEKS;
     Dates: start: 200701, end: 200702
  13. TOCILIZUMAB [Suspect]
     Active Substance: TOCILIZUMAB
     Indication: Haemophagocytic lymphohistiocytosis
     Route: 065
  14. THALIDOMIDE [Suspect]
     Active Substance: THALIDOMIDE
     Indication: Still^s disease
     Dosage: 2.5 MG/KG, DAILY;
     Route: 048
     Dates: start: 200408, end: 200507
  15. THALIDOMIDE [Suspect]
     Active Substance: THALIDOMIDE
     Indication: Haemophagocytic lymphohistiocytosis
     Dosage: 2.5 MG/KG, DAILY;
     Route: 048
     Dates: start: 200508, end: 200512
  16. THALIDOMIDE [Suspect]
     Active Substance: THALIDOMIDE
     Dosage: 2.5 MG/KG, DAILY;
     Route: 048
     Dates: start: 200807, end: 200901
  17. THALIDOMIDE [Suspect]
     Active Substance: THALIDOMIDE
     Dosage: 2.5 MG/KG, DAILY;
     Route: 048
     Dates: start: 200606, end: 200608
  18. THALIDOMIDE [Suspect]
     Active Substance: THALIDOMIDE
     Route: 065
  19. METHOTREXATE SODIUM [Suspect]
     Active Substance: METHOTREXATE SODIUM
     Indication: Haemophagocytic lymphohistiocytosis
     Dosage: 15 MG/M2, WEEKLY;
     Route: 058
     Dates: start: 200408, end: 200603
  20. METHOTREXATE SODIUM [Suspect]
     Active Substance: METHOTREXATE SODIUM
     Dosage: 15 MG/M2, WEEKLY;
     Route: 058
     Dates: start: 201007
  21. CYCLOSPORINE [Suspect]
     Active Substance: CYCLOSPORINE
     Indication: Still^s disease
     Dosage: 3-4 MG/KG/DAY ORAL OR 2 MG/KG/DAY;
     Route: 048
     Dates: start: 200512, end: 200603
  22. CYCLOSPORINE [Suspect]
     Active Substance: CYCLOSPORINE
     Indication: Haemophagocytic lymphohistiocytosis
     Dosage: 3-4 MG/KG/DAY ORAL OR 2 MG/KG/DAY;
     Dates: start: 200606, end: 201011
  23. CYCLOSPORINE [Suspect]
     Active Substance: CYCLOSPORINE
  24. CANAKINUMAB [Suspect]
     Active Substance: CANAKINUMAB
     Indication: Haemophagocytic lymphohistiocytosis
     Dosage: 300 MG/4 WEEKS;
     Route: 065
     Dates: start: 201803, end: 202007
  25. AZATHIOPRINE [Suspect]
     Active Substance: AZATHIOPRINE
     Indication: Haemophagocytic lymphohistiocytosis
     Dosage: 2 MG/KG, DAILY;
     Route: 048
     Dates: start: 200603, end: 200606
  26. ANAKINRA [Suspect]
     Active Substance: ANAKINRA
     Indication: Still^s disease
     Dosage: 2 - 5 MG/KG/DAY UP TO 100 MG/DAY;
     Route: 042
     Dates: start: 200507
  27. ANAKINRA [Suspect]
     Active Substance: ANAKINRA
     Indication: Haemophagocytic lymphohistiocytosis
     Dosage: 2 - 5 MG/KG/DAY UP TO 100 MG/DAY;
     Route: 042
     Dates: start: 200512
  28. ANAKINRA [Suspect]
     Active Substance: ANAKINRA
     Dosage: 2 - 5 MG/KG/DAY UP TO 100 MG/DAY;
     Route: 042
     Dates: start: 201310
  29. ANAKINRA [Suspect]
     Active Substance: ANAKINRA
     Dosage: 2 - 5 MG/KG/DAY UP TO 100 MG/DAY;
     Route: 042
     Dates: start: 200804
  30. ANAKINRA [Suspect]
     Active Substance: ANAKINRA
     Route: 065
  31. ABATACEPT [Suspect]
     Active Substance: ABATACEPT
     Indication: Still^s disease
     Dosage: 10 MG/KG EVERY 4 WEEKS;
     Route: 042
     Dates: start: 200807, end: 200812
  32. ABATACEPT [Suspect]
     Active Substance: ABATACEPT
     Indication: Haemophagocytic lymphohistiocytosis
  33. PREDNISONE [Suspect]
     Active Substance: PREDNISONE
     Indication: Still^s disease
     Dosage: 0.08 MG/KG;
     Route: 048
  34. PREDNISONE [Suspect]
     Active Substance: PREDNISONE
     Indication: Haemophagocytic lymphohistiocytosis
     Dosage: 0.08 MILLIGRAM/KILOGRAM, QD;
     Route: 048
  35. PREDNISONE [Suspect]
     Active Substance: PREDNISONE
     Route: 048

REACTIONS (7)
  - Haemophagocytic lymphohistiocytosis [Unknown]
  - COVID-19 [Unknown]
  - Still^s disease [Unknown]
  - Thrombotic microangiopathy [Unknown]
  - Steroid dependence [Unknown]
  - Drug ineffective for unapproved indication [Unknown]
  - Off label use [Unknown]
